FAERS Safety Report 8067155-1 (Version None)
Quarter: 2011Q4

REPORT INFORMATION
  Report Type: 
  Country: None (occurrence: None)
  Receive Date: 20111221
  Receipt Date: 20110812
  Transmission Date: 20120403
  Serious: Yes (Other)
  Sender: FDA-Public Use
  Company Number: PHHY2010US81065

PATIENT
  Age: 72 Year
  Sex: Female
  Weight: 55 kg

DRUGS (4)
  1. PAXIL [Concomitant]
  2. MEGACE [Concomitant]
  3. EXJADE [Suspect]
     Indication: ACUTE LYMPHOCYTIC LEUKAEMIA
     Dosage: 1250 MG, QD, ORAL
     Route: 048
     Dates: start: 20091013
  4. PREVACID [Concomitant]

REACTIONS (4)
  - ABDOMINAL DISCOMFORT [None]
  - NAUSEA [None]
  - DIARRHOEA [None]
  - ABDOMINAL PAIN UPPER [None]
